FAERS Safety Report 6503952-9 (Version None)
Quarter: 2009Q4

REPORT INFORMATION
  Report Type: 
  Country: None (occurrence: None)
  Receive Date: 20091217
  Receipt Date: 20091216
  Transmission Date: 20100525
  Serious: Yes (Life-Threatening, Hospitalization)
  Sender: FDA-Public Use
  Company Number: DE-B.I. PHARMACEUTICALS,INC./RIDGEFIELD-2009-DE-07756DE

PATIENT
  Age: 75 Year
  Sex: Female
  Weight: 45 kg

DRUGS (3)
  1. SPIRIVA [Suspect]
     Indication: DIARRHOEA
     Dosage: 5 CAPSULES
  2. SPIRIVA [Concomitant]
     Indication: CHRONIC OBSTRUCTIVE PULMONARY DISEASE
     Dosage: 1 DF DOSAGE FORM EVERY DAY
  3. SYMBICORT [Concomitant]
     Indication: CHRONIC OBSTRUCTIVE PULMONARY DISEASE
     Dosage: 2 DF EVERY DAY

REACTIONS (5)
  - ILEUS PARALYTIC [None]
  - MEGACOLON [None]
  - OVERDOSE [None]
  - RENAL FAILURE ACUTE [None]
  - SEPSIS [None]
